FAERS Safety Report 15982633 (Version 1)
Quarter: 2019Q1

REPORT INFORMATION
  Report Type: Spontaneous
  Country: AT (occurrence: AT)
  Receive Date: 20190219
  Receipt Date: 20190219
  Transmission Date: 20190418
  Serious: Yes (Other)
  Sender: FDA-Public Use
  Company Number: AT-PFIZER INC-2019067969

PATIENT
  Age: 8 Year
  Sex: Male
  Weight: 36 kg

DRUGS (1)
  1. ZITHROMAX [Suspect]
     Active Substance: AZITHROMYCIN DIHYDRATE
     Indication: TONSILLITIS
     Dates: start: 20190113

REACTIONS (4)
  - Abnormal behaviour [Unknown]
  - Amnesia [Unknown]
  - Hallucination [Unknown]
  - Somnambulism [Unknown]

NARRATIVE: CASE EVENT DATE: 20190113
